FAERS Safety Report 6443163-9 (Version None)
Quarter: 2009Q4

REPORT INFORMATION
  Report Type: 
  Country: None (occurrence: None)
  Receive Date: 20091117
  Receipt Date: 20091110
  Transmission Date: 20100525
  Serious: Yes (Hospitalization)
  Sender: FDA-Public Use
  Company Number: B0603117A

PATIENT
  Sex: Male

DRUGS (2)
  1. CLAMOXYL [Suspect]
     Indication: SKIN INFECTION
     Route: 048
     Dates: start: 20090622, end: 20090627
  2. ORELOX [Suspect]
     Indication: TONSILLITIS
     Dosage: 100MG UNKNOWN
     Route: 048
     Dates: start: 20090713, end: 20090718

REACTIONS (4)
  - ABDOMINAL PAIN [None]
  - CLOSTRIDIUM TEST POSITIVE [None]
  - DIARRHOEA [None]
  - PSEUDOMEMBRANOUS COLITIS [None]
